FAERS Safety Report 14165693 (Version 1)
Quarter: 2017Q4

REPORT INFORMATION
  Report Type: Spontaneous
  Country: SG (occurrence: SG)
  Receive Date: 20171107
  Receipt Date: 20171107
  Transmission Date: 20180321
  Serious: Yes (Hospitalization, Other)
  Sender: FDA-Public Use
  Company Number: SG-BAYER-2017-207555

PATIENT
  Age: 34 Year
  Sex: Female

DRUGS (1)
  1. AVELOX [Suspect]
     Active Substance: MOXIFLOXACIN HYDROCHLORIDE
     Indication: BRONCHITIS
     Dosage: 1 DF, QD
     Route: 048

REACTIONS (3)
  - Rash [Unknown]
  - Oral mucosal eruption [Unknown]
  - Pyrexia [Unknown]

NARRATIVE: CASE EVENT DATE: 20170826
